FAERS Safety Report 6362912-1 (Version None)
Quarter: 2009Q3

REPORT INFORMATION
  Report Type: 
  Country: None (occurrence: None)
  Receive Date: 20090919
  Receipt Date: 20090615
  Transmission Date: 20100115
  Serious: No
  Sender: FDA-Public Use
  Company Number: US-ABBOTT-09P-163-0579905-00

PATIENT
  Sex: Female
  Weight: 62.652 kg

DRUGS (1)
  1. HUMIRA [Suspect]
     Indication: CROHN'S DISEASE
     Dosage: (80MG DAY 1)
     Dates: start: 20090516

REACTIONS (4)
  - CONTUSION [None]
  - DRUG DOSE OMISSION [None]
  - FALL [None]
  - LIGAMENT RUPTURE [None]
